FAERS Safety Report 25932770 (Version 1)
Quarter: 2025Q4

REPORT INFORMATION
  Report Type: Spontaneous
  Country: US (occurrence: US)
  Receive Date: 20251017
  Receipt Date: 20251017
  Transmission Date: 20260117
  Serious: No
  Sender: ABBVIE
  Company Number: US-ABBVIE-6496240

PATIENT
  Age: 44 Year
  Sex: Female
  Weight: 99 kg

DRUGS (24)
  1. BOTOX [Suspect]
     Active Substance: ONABOTULINUMTOXINA
     Indication: Migraine
     Dosage: TIME INTERVAL: AS NECESSARY: FREQUENCY: EVERY 12 WEEKS
     Route: 030
     Dates: start: 2022, end: 2022
  2. BOTOX [Suspect]
     Active Substance: ONABOTULINUMTOXINA
     Indication: Migraine
     Dosage: TIME INTERVAL: AS NECESSARY: FREQUENCY: EVERY 12 WEEKS, 2ND DOSE
     Route: 030
     Dates: start: 20251002, end: 20251002
  3. BOTOX [Suspect]
     Active Substance: ONABOTULINUMTOXINA
     Indication: Migraine
     Dosage: TIME INTERVAL: AS NECESSARY: FREQUENCY: EVERY 12 WEEKS, 3RD DOSE
     Route: 030
     Dates: start: 20251002, end: 20251002
  4. BOTOX [Suspect]
     Active Substance: ONABOTULINUMTOXINA
     Indication: Migraine
     Dosage: TIME INTERVAL: AS NECESSARY: FREQUENCY: EVERY 12 WEEKS, 4TH DOSE
     Route: 030
     Dates: start: 20251002, end: 20251002
  5. BOTOX [Suspect]
     Active Substance: ONABOTULINUMTOXINA
     Indication: Migraine
     Dosage: TIME INTERVAL: AS NECESSARY: FREQUENCY: EVERY 12 WEEKS, 5TH DOSE
     Route: 030
     Dates: start: 20251002, end: 20251002
  6. BOTOX [Suspect]
     Active Substance: ONABOTULINUMTOXINA
     Indication: Migraine
     Dosage: TIME INTERVAL: AS NECESSARY: FREQUENCY: EVERY 12 WEEKS, 6TH DOSE
     Route: 030
     Dates: start: 20251002, end: 20251002
  7. BOTOX [Suspect]
     Active Substance: ONABOTULINUMTOXINA
     Indication: Migraine
     Dosage: TIME INTERVAL: AS NECESSARY: FREQUENCY: EVERY 12 WEEKS, 7TH DOSE
     Route: 030
     Dates: start: 20251002, end: 20251002
  8. BOTOX [Suspect]
     Active Substance: ONABOTULINUMTOXINA
     Indication: Migraine
     Dosage: TIME INTERVAL: AS NECESSARY: FREQUENCY: EVERY 12 WEEKS, 8TH DOSE
     Route: 030
     Dates: start: 20251002, end: 20251002
  9. BOTOX [Suspect]
     Active Substance: ONABOTULINUMTOXINA
     Indication: Migraine
     Dosage: TIME INTERVAL: AS NECESSARY: FREQUENCY: EVERY 12 WEEKS, 9TH DOSE
     Route: 030
     Dates: start: 20251002, end: 20251002
  10. BOTOX [Suspect]
     Active Substance: ONABOTULINUMTOXINA
     Indication: Migraine
     Dosage: TIME INTERVAL: AS NECESSARY: FREQUENCY: EVERY 12 WEEKS, 10TH DOSE
     Route: 030
     Dates: start: 20251002, end: 20251002
  11. BOTOX [Suspect]
     Active Substance: ONABOTULINUMTOXINA
     Indication: Migraine
     Dosage: TIME INTERVAL: AS NECESSARY: FREQUENCY: EVERY 12 WEEKS, 11TH DOSE
     Route: 030
     Dates: start: 20251002, end: 20251002
  12. BOTOX [Suspect]
     Active Substance: ONABOTULINUMTOXINA
     Indication: Migraine
     Dosage: TIME INTERVAL: AS NECESSARY: FREQUENCY: EVERY 12 WEEKS, 12TH DOSE
     Route: 030
     Dates: start: 20251002, end: 20251002
  13. BOTOX [Suspect]
     Active Substance: ONABOTULINUMTOXINA
     Indication: Migraine
     Dosage: TIME INTERVAL: AS NECESSARY: FREQUENCY: EVERY 12 WEEKS, 13TH DOSE
     Route: 030
     Dates: start: 20251002, end: 20251002
  14. BOTOX [Suspect]
     Active Substance: ONABOTULINUMTOXINA
     Indication: Migraine
     Dosage: TIME INTERVAL: AS NECESSARY: FREQUENCY: EVERY 12 WEEKS, 14TH DOSE
     Route: 030
     Dates: start: 20251002, end: 20251002
  15. BOTOX [Suspect]
     Active Substance: ONABOTULINUMTOXINA
     Indication: Migraine
     Dosage: TIME INTERVAL: AS NECESSARY: FREQUENCY: EVERY 12 WEEKS, 15TH DOSE
     Route: 030
     Dates: start: 20251002, end: 20251002
  16. BOTOX [Suspect]
     Active Substance: ONABOTULINUMTOXINA
     Indication: Migraine
     Dosage: TIME INTERVAL: AS NECESSARY: FREQUENCY: EVERY 12 WEEKS, 16TH DOSE
     Route: 030
     Dates: start: 20251002, end: 20251002
  17. BOTOX [Suspect]
     Active Substance: ONABOTULINUMTOXINA
     Indication: Migraine
     Dosage: TIME INTERVAL: AS NECESSARY: FREQUENCY: EVERY 12 WEEKS, 17TH DOSE
     Route: 030
     Dates: start: 20251002, end: 20251002
  18. BOTOX [Suspect]
     Active Substance: ONABOTULINUMTOXINA
     Indication: Migraine
     Dosage: TIME INTERVAL: AS NECESSARY: FREQUENCY: EVERY 12 WEEKS, 18TH DOSE
     Route: 030
     Dates: start: 20251002, end: 20251002
  19. BOTOX [Suspect]
     Active Substance: ONABOTULINUMTOXINA
     Indication: Migraine
     Dosage: TIME INTERVAL: AS NECESSARY: FREQUENCY: EVERY 12 WEEKS, 19TH DOSE
     Route: 030
     Dates: start: 20251002, end: 20251002
  20. BOTOX [Suspect]
     Active Substance: ONABOTULINUMTOXINA
     Indication: Migraine
     Dosage: TIME INTERVAL: AS NECESSARY: FREQUENCY: EVERY 12 WEEKS, 20TH DOSE
     Route: 030
     Dates: start: 20251002, end: 20251002
  21. BOTOX [Suspect]
     Active Substance: ONABOTULINUMTOXINA
     Indication: Migraine
     Dosage: TIME INTERVAL: AS NECESSARY: FREQUENCY: EVERY 12 WEEKS, 1ST DOSE
     Route: 030
     Dates: start: 20251002, end: 20251002
  22. ALBUTEROL [Concomitant]
     Active Substance: ALBUTEROL
     Indication: Asthma
     Dosage: TIME INTERVAL: AS NECESSARY
     Route: 065
  23. OLMESARTAN [Concomitant]
     Active Substance: OLMESARTAN
     Indication: Blood pressure measurement
     Route: 065
  24. CHLORTHALIDONE [Concomitant]
     Active Substance: CHLORTHALIDONE
     Indication: Blood pressure measurement
     Route: 065

REACTIONS (2)
  - Injection site discomfort [Recovered/Resolved]
  - Injection site pain [Recovered/Resolved]

NARRATIVE: CASE EVENT DATE: 20220101
